FAERS Safety Report 24109983 (Version 1)
Quarter: 2024Q3

REPORT INFORMATION
  Report Type: Spontaneous
  Country: US (occurrence: US)
  Receive Date: 20240718
  Receipt Date: 20240718
  Transmission Date: 20241016
  Serious: No
  Sender: ELI LILLY AND CO
  Company Number: US-ELI_LILLY_AND_COMPANY-US202407011314

PATIENT

DRUGS (4)
  1. HUMULIN N [Suspect]
     Active Substance: INSULIN HUMAN
     Indication: Product used for unknown indication
     Dosage: 24  U, UNKNOWN
     Route: 058
     Dates: start: 2023
  2. HUMULIN N [Suspect]
     Active Substance: INSULIN HUMAN
     Indication: Product used for unknown indication
     Dosage: 24  U, UNKNOWN
     Route: 058
     Dates: start: 2023
  3. HUMULIN N [Suspect]
     Active Substance: INSULIN HUMAN
     Dosage: 24  U, UNKNOWN
     Route: 058
  4. HUMULIN N [Suspect]
     Active Substance: INSULIN HUMAN
     Dosage: 24  U, UNKNOWN
     Route: 058

REACTIONS (1)
  - Accidental underdose [Unknown]
